FAERS Safety Report 16063082 (Version 1)
Quarter: 2019Q1

REPORT INFORMATION
  Report Type: Spontaneous
  Country: CZ (occurrence: CZ)
  Receive Date: 20190312
  Receipt Date: 20190312
  Transmission Date: 20190418
  Serious: Yes (Life-Threatening, Hospitalization, Other)
  Sender: FDA-Public Use
  Company Number: CZ-MYLANLABS-2019M1021536

PATIENT
  Age: 31 Year
  Sex: Male

DRUGS (2)
  1. LAMOTRIGINE. [Suspect]
     Active Substance: LAMOTRIGINE
     Indication: EPILEPSY
     Dosage: 1 MILLIGRAM/KILOGRAM, BID (1-0-1)
     Route: 048
  2. DEPAKINE                           /00228502/ [Concomitant]
     Active Substance: VALPROATE SODIUM
     Indication: EPILEPSY
     Dosage: ANTIEPILEPTIC MEDICATION.
     Route: 051

REACTIONS (5)
  - Mucosal erosion [Recovering/Resolving]
  - Dyspnoea [Unknown]
  - Stevens-Johnson syndrome [Recovering/Resolving]
  - Skin lesion [Recovering/Resolving]
  - Impetigo [Recovering/Resolving]
